FAERS Safety Report 4285616-8 (Version None)
Quarter: 2004Q1

REPORT INFORMATION
  Report Type: 
  Country: None (occurrence: None)
  Receive Date: 20040203
  Receipt Date: 20040120
  Transmission Date: 20041129
  Serious: No
  Sender: FDA-Public Use
  Company Number: 04H-163-0247766-00

PATIENT

DRUGS (2)
  1. HALOTHANE [Suspect]
     Indication: ANAESTHESIA
     Dosage: INHALATION
     Route: 055
  2. MIDAZOLAM HCL [Concomitant]

REACTIONS (2)
  - AIRWAY COMPLICATION OF ANAESTHESIA [None]
  - LARYNGOSPASM [None]
